FAERS Safety Report 5604148-5 (Version None)
Quarter: 2008Q1

REPORT INFORMATION
  Report Type: 
  Country: None (occurrence: None)
  Receive Date: 20080123
  Receipt Date: 20080123
  Transmission Date: 20080703
  Serious: No
  Sender: FDA-Public Use
  Company Number: None

PATIENT
  Sex: Female

DRUGS (1)
  1. REBIF [Suspect]
     Indication: MULTIPLE SCLEROSIS
     Dosage: INJECT 44MCG THREE TIMES A WEEK SQ  2 1/2 YEARS
     Route: 058

REACTIONS (3)
  - CHILLS [None]
  - CONVULSION [None]
  - INITIAL INSOMNIA [None]
